FAERS Safety Report 9562405 (Version 1)
Quarter: 2013Q3

REPORT INFORMATION
  Report Type: Spontaneous
  Country: US (occurrence: US)
  Receive Date: 20130927
  Receipt Date: 20130927
  Transmission Date: 20140515
  Serious: Yes (Other)
  Sender: FDA-Public Use
  Company Number: US-UCBSA-098061

PATIENT
  Sex: Female

DRUGS (2)
  1. CIMZIA [Suspect]
     Indication: CROHN^S DISEASE
     Dates: start: 200908
  2. CIMZIA [Suspect]
     Indication: CROHN^S DISEASE

REACTIONS (1)
  - Surgery [Not Recovered/Not Resolved]
